FAERS Safety Report 5744065-3 (Version None)
Quarter: 2008Q2

REPORT INFORMATION
  Report Type: 
  Country: None (occurrence: None)
  Receive Date: 20080516
  Receipt Date: 20080516
  Transmission Date: 20081010
  Serious: Yes (Life-Threatening, Other)
  Sender: FDA-Public Use
  Company Number: None

PATIENT
  Age: 62 Year
  Sex: Male

DRUGS (1)
  1. IBUROFEN [Suspect]
     Dosage: 400 MG PO X1
     Dates: start: 20080107, end: 20080107

REACTIONS (3)
  - BLOOD PH DECREASED [None]
  - HYPOTENSION [None]
  - HYPOXIA [None]
